FAERS Safety Report 6397399-6 (Version None)
Quarter: 2009Q4

REPORT INFORMATION
  Report Type: 
  Country: None (occurrence: None)
  Receive Date: 20091012
  Receipt Date: 20090929
  Transmission Date: 20100525
  Serious: Yes (Hospitalization)
  Sender: FDA-Public Use
  Company Number: PHHY2009FR42669

PATIENT
  Sex: Female

DRUGS (6)
  1. VOLTAREN [Suspect]
     Dosage: UNK
  2. KARDEGIC [Interacting]
     Indication: CARDIOMYOPATHY
     Dosage: 160 MG /1 DF PER DAY
     Dates: start: 20020101, end: 20090918
  3. HYZAAR [Concomitant]
     Indication: HYPERTENSION
     Dosage: 1 DF, UNK
  4. HEMIGOXINE NATIVELLE [Concomitant]
     Indication: CARDIOMYOPATHY
     Dosage: 1 DF, UNK
  5. NORMACOL [Concomitant]
  6. MELAXOSE [Concomitant]

REACTIONS (15)
  - ABDOMINAL PAIN [None]
  - BLOOD GLUCOSE INCREASED [None]
  - FAECES DISCOLOURED [None]
  - GASTRIC POLYPS [None]
  - GASTRIC ULCER [None]
  - GASTRITIS [None]
  - HAEMATOCRIT DECREASED [None]
  - HAEMOGLOBIN DECREASED [None]
  - HELICOBACTER INFECTION [None]
  - MELAENA [None]
  - NAUSEA [None]
  - NEUTROPHIL COUNT INCREASED [None]
  - PLATELET COUNT INCREASED [None]
  - RED BLOOD CELL COUNT DECREASED [None]
  - REGURGITATION [None]
